FAERS Safety Report 4548737-8 (Version None)
Quarter: 2004Q4

REPORT INFORMATION
  Report Type: 
  Country: None (occurrence: None)
  Receive Date: 20041220
  Receipt Date: 20031208
  Transmission Date: 20050328
  Serious: Yes (Hospitalization)
  Sender: FDA-Public Use
  Company Number: USA031254195

PATIENT
  Sex: Male

DRUGS (3)
  1. HUMULIN 70/30 [Suspect]
  2. HUMULIN 50/50 [Suspect]
  3. HUMULIN R [Suspect]

REACTIONS (1)
  - BLOOD GLUCOSE INCREASED [None]
